FAERS Safety Report 9051302 (Version 2)
Quarter: 2013Q1

REPORT INFORMATION
  Report Type: Report from Study
  Country: CA (occurrence: CA)
  Receive Date: 20130206
  Receipt Date: 20130218
  Transmission Date: 20140127
  Serious: Yes (Other)
  Sender: FDA-Public Use
  Company Number: PHHY2013CA010599

PATIENT
  Sex: Female

DRUGS (2)
  1. CLOZARIL [Suspect]
     Indication: SCHIZOAFFECTIVE DISORDER
     Dosage: 12.5 MG
     Dates: start: 20130109, end: 20130109
  2. CLOZARIL [Suspect]
     Dosage: 12.5 MG, ONE DOSE ONLY
     Route: 048
     Dates: start: 20130110, end: 20130110

REACTIONS (8)
  - Fall [Unknown]
  - Mouth injury [Unknown]
  - Laceration [Unknown]
  - Confusional state [Unknown]
  - Pyrexia [Unknown]
  - Muscle rigidity [Unknown]
  - Lethargy [Unknown]
  - Tachycardia [Unknown]
